FAERS Safety Report 24414997 (Version 4)
Quarter: 2024Q4

REPORT INFORMATION
  Report Type: Report from Study
  Country: CN (occurrence: CN)
  Receive Date: 20241009
  Receipt Date: 20241029
  Transmission Date: 20250115
  Serious: Yes (Life-Threatening, Hospitalization)
  Sender: SANOFI AVENTIS
  Company Number: CN-SA-2024SA273458

PATIENT
  Age: 64 Year
  Sex: Male
  Weight: 71.3 kg

DRUGS (70)
  1. ISATUXIMAB [Suspect]
     Active Substance: ISATUXIMAB
     Indication: Plasma cell myeloma refractory
     Dosage: 840 MG
     Route: 042
     Dates: start: 20230302, end: 20230302
  2. ISATUXIMAB [Suspect]
     Active Substance: ISATUXIMAB
     Dosage: 720 MG
     Route: 042
     Dates: start: 20240822, end: 20240822
  3. ISATUXIMAB [Suspect]
     Active Substance: ISATUXIMAB
     Dosage: 720 MG
     Route: 042
     Dates: start: 20240905, end: 20240905
  4. ISATUXIMAB [Suspect]
     Active Substance: ISATUXIMAB
     Dosage: 720 MG
     Route: 042
     Dates: start: 20240919, end: 20240919
  5. POMALIDOMIDE [Suspect]
     Active Substance: POMALIDOMIDE
     Indication: Plasma cell myeloma refractory
     Dosage: 4 MG
     Route: 048
     Dates: start: 20230302, end: 20230313
  6. POMALIDOMIDE [Suspect]
     Active Substance: POMALIDOMIDE
     Dosage: 1 MG
     Route: 048
     Dates: start: 20240808, end: 20240821
  7. DEXAMETHASONE [Suspect]
     Active Substance: DEXAMETHASONE
     Indication: Plasma cell myeloma refractory
     Dosage: 40 MG
     Route: 042
     Dates: start: 20230302
  8. DEXAMETHASONE [Suspect]
     Active Substance: DEXAMETHASONE
     Dosage: 40 MG
     Route: 042
     Dates: start: 20230309
  9. DEXAMETHASONE [Suspect]
     Active Substance: DEXAMETHASONE
     Dosage: 40 MG
     Route: 042
     Dates: start: 20230323
  10. DEXAMETHASONE [Suspect]
     Active Substance: DEXAMETHASONE
     Dosage: 15 MG
     Route: 048
     Dates: start: 20240815
  11. DEXAMETHASONE [Suspect]
     Active Substance: DEXAMETHASONE
     Dosage: 15 MG
     Route: 042
     Dates: start: 20240822
  12. DEXAMETHASONE [Suspect]
     Active Substance: DEXAMETHASONE
     Dosage: 15 MG
     Route: 048
     Dates: start: 20240829
  13. PANTOPRAZOLE SODIUM [Concomitant]
     Active Substance: PANTOPRAZOLE SODIUM
     Indication: Prophylaxis
     Dosage: 40 MG
     Route: 048
     Dates: start: 20240611, end: 20240611
  14. PANTOPRAZOLE SODIUM [Concomitant]
     Active Substance: PANTOPRAZOLE SODIUM
     Dosage: 40 MG
     Route: 048
     Dates: start: 20240625, end: 20240625
  15. PANTOPRAZOLE SODIUM [Concomitant]
     Active Substance: PANTOPRAZOLE SODIUM
     Dosage: 40 MG
     Route: 048
     Dates: start: 20240711, end: 20240711
  16. PANTOPRAZOLE SODIUM [Concomitant]
     Active Substance: PANTOPRAZOLE SODIUM
     Dosage: 40 MG
     Route: 048
     Dates: start: 20240725, end: 20240725
  17. PANTOPRAZOLE SODIUM [Concomitant]
     Active Substance: PANTOPRAZOLE SODIUM
     Dosage: 40 MG
     Route: 048
     Dates: start: 20240808, end: 20240808
  18. PANTOPRAZOLE SODIUM [Concomitant]
     Active Substance: PANTOPRAZOLE SODIUM
     Dosage: 40 MG
     Route: 048
     Dates: start: 20240822, end: 20240822
  19. PANTOPRAZOLE SODIUM [Concomitant]
     Active Substance: PANTOPRAZOLE SODIUM
     Dosage: 40 MG
     Route: 048
     Dates: start: 20240905, end: 20240905
  20. PANTOPRAZOLE SODIUM [Concomitant]
     Active Substance: PANTOPRAZOLE SODIUM
     Dosage: 40 MG, PRN
     Route: 048
     Dates: start: 20230330
  21. PANTOPRAZOLE SODIUM [Concomitant]
     Active Substance: PANTOPRAZOLE SODIUM
     Dosage: 40 MG
     Route: 048
     Dates: start: 20240919, end: 20240919
  22. PROTAMINE RECOMBINANT HUMAN INSULIN [Concomitant]
     Indication: Prophylaxis
     Dosage: 10 MG
     Route: 058
     Dates: start: 20230228
  23. METOPROLOL SUCCINATE [Concomitant]
     Active Substance: METOPROLOL SUCCINATE
     Indication: Prophylaxis
     Dosage: 47.5 MG
     Route: 048
     Dates: start: 20240311
  24. AVATROMBOPAG [Concomitant]
     Active Substance: AVATROMBOPAG
     Indication: Prophylaxis
     Dosage: 60 MG
     Route: 048
     Dates: start: 20240320
  25. SITAGLIPTIN PHOSPHATE [Concomitant]
     Active Substance: SITAGLIPTIN PHOSPHATE
     Indication: Prophylaxis
     Dosage: 1 DF
     Route: 048
     Dates: start: 20240411
  26. CALCIUM CARBONATE\CHOLECALCIFEROL [Concomitant]
     Active Substance: CALCIUM CARBONATE\CHOLECALCIFEROL
     Indication: Prophylaxis
     Dosage: 1 DF
     Route: 048
     Dates: start: 20240514, end: 20241002
  27. COMPOUND GLYCYRRHIZA [AMMONIA;BENZOIC ACID;CAMPHOR;GLYCEROL;GLYCYRRHIZ [Concomitant]
     Indication: Prophylaxis
     Dosage: 45 ML
     Route: 048
     Dates: start: 20240517, end: 20240609
  28. COMPOUND GLYCYRRHIZA [AMMONIA;BENZOIC ACID;CAMPHOR;GLYCEROL;GLYCYRRHIZ [Concomitant]
     Dosage: 45 ML
     Route: 048
     Dates: start: 20240611, end: 20240720
  29. VALGANCICLOVIR HYDROCHLORIDE [Concomitant]
     Active Substance: VALGANCICLOVIR HYDROCHLORIDE
     Indication: Prophylaxis
     Dosage: 0.9 G
     Route: 048
     Dates: start: 20240525, end: 20240912
  30. LEUCOGEN [Concomitant]
     Active Substance: LEUCOGEN
     Indication: Prophylaxis
     Dosage: 120 MG
     Route: 048
     Dates: start: 20240525, end: 20240531
  31. LEUCOGEN [Concomitant]
     Active Substance: LEUCOGEN
     Dosage: 120 MG
     Route: 048
     Dates: start: 20240611, end: 20240615
  32. LEUCOGEN [Concomitant]
     Active Substance: LEUCOGEN
     Dosage: 120 MG
     Route: 048
     Dates: start: 20240625, end: 20240724
  33. LEUCOGEN [Concomitant]
     Active Substance: LEUCOGEN
     Dosage: 120 MG
     Route: 048
     Dates: start: 20240808, end: 20240922
  34. CLOSTRIDIUM BUTYRICUM [Concomitant]
     Indication: Prophylaxis
     Dosage: 60 MG
     Route: 048
     Dates: start: 20240527, end: 20240903
  35. MONTMORILLONITE [Concomitant]
     Active Substance: MONTMORILLONITE
     Indication: Prophylaxis
     Dosage: 0.9 G
     Route: 048
     Dates: start: 20240527, end: 20240531
  36. MONTMORILLONITE [Concomitant]
     Active Substance: MONTMORILLONITE
     Dosage: 9 G
     Route: 048
     Dates: start: 20240611
  37. LOPERAMIDE HYDROCHLORIDE [Concomitant]
     Active Substance: LOPERAMIDE HYDROCHLORIDE
     Indication: Prophylaxis
     Dosage: 4 MG, PRN
     Route: 048
     Dates: start: 20240527, end: 20240529
  38. LOPERAMIDE HYDROCHLORIDE [Concomitant]
     Active Substance: LOPERAMIDE HYDROCHLORIDE
     Dosage: 4 MG, PRN
     Route: 048
     Dates: start: 20240611
  39. HUMAN IMMUNOGLOBULIN G [Concomitant]
     Active Substance: HUMAN IMMUNOGLOBULIN G
     Indication: Prophylaxis
     Dosage: 5 G
     Route: 041
     Dates: start: 20240527, end: 20240528
  40. HUMAN IMMUNOGLOBULIN G [Concomitant]
     Active Substance: HUMAN IMMUNOGLOBULIN G
     Dosage: 5 G
     Route: 041
     Dates: start: 20240710, end: 20240711
  41. HUMAN IMMUNOGLOBULIN G [Concomitant]
     Active Substance: HUMAN IMMUNOGLOBULIN G
     Dosage: 5 G
     Route: 041
     Dates: start: 20240610, end: 20240711
  42. HUMAN IMMUNOGLOBULIN G [Concomitant]
     Active Substance: HUMAN IMMUNOGLOBULIN G
     Dosage: 5 G
     Route: 041
     Dates: start: 20240724, end: 20240725
  43. HUMAN IMMUNOGLOBULIN G [Concomitant]
     Active Substance: HUMAN IMMUNOGLOBULIN G
     Dosage: 5 G
     Route: 041
     Dates: start: 20240807, end: 20240808
  44. HUMAN IMMUNOGLOBULIN G [Concomitant]
     Active Substance: HUMAN IMMUNOGLOBULIN G
     Dosage: 5 G
     Route: 041
     Dates: start: 20240821
  45. POTASSIUM CHLORIDE [Concomitant]
     Active Substance: POTASSIUM CHLORIDE
     Indication: Prophylaxis
     Dosage: 3 G
     Route: 048
     Dates: start: 20240611, end: 20240618
  46. POTASSIUM CHLORIDE [Concomitant]
     Active Substance: POTASSIUM CHLORIDE
     Dosage: 3 G
     Route: 048
     Dates: start: 20240711, end: 20240715
  47. POTASSIUM CHLORIDE [Concomitant]
     Active Substance: POTASSIUM CHLORIDE
     Dosage: 3 G
     Route: 048
     Dates: start: 20240808, end: 20240815
  48. POTASSIUM CHLORIDE [Concomitant]
     Active Substance: POTASSIUM CHLORIDE
     Dosage: 3 G
     Route: 048
     Dates: start: 20240821, end: 20240821
  49. POTASSIUM CHLORIDE [Concomitant]
     Active Substance: POTASSIUM CHLORIDE
     Indication: Prophylaxis
     Dosage: 15 ML
     Route: 041
     Dates: start: 20240611, end: 20240612
  50. POTASSIUM CHLORIDE [Concomitant]
     Active Substance: POTASSIUM CHLORIDE
     Dosage: 15 ML
     Route: 041
     Dates: start: 20240808, end: 20240808
  51. POTASSIUM CHLORIDE [Concomitant]
     Active Substance: POTASSIUM CHLORIDE
     Dosage: 15 ML
     Route: 041
     Dates: start: 20240821, end: 20240821
  52. POTASSIUM CHLORIDE [Concomitant]
     Active Substance: POTASSIUM CHLORIDE
     Dosage: 15 ML
     Route: 041
     Dates: start: 20240822, end: 20240822
  53. POTASSIUM CHLORIDE [Concomitant]
     Active Substance: POTASSIUM CHLORIDE
     Dosage: 15 ML
     Route: 041
     Dates: start: 20240914, end: 20240915
  54. MAGNESIUM SULFATE [Concomitant]
     Active Substance: MAGNESIUM SULFATE
     Indication: Prophylaxis
     Dosage: 2 G
     Route: 041
     Dates: start: 20240611, end: 20240611
  55. MAGNESIUM SULFATE [Concomitant]
     Active Substance: MAGNESIUM SULFATE
     Dosage: 2 G
     Route: 041
     Dates: start: 20240808, end: 20240808
  56. MAGNESIUM SULFATE [Concomitant]
     Active Substance: MAGNESIUM SULFATE
     Dosage: 2.5 G
     Route: 041
     Dates: start: 20240821, end: 20240821
  57. MAGNESIUM SULFATE [Concomitant]
     Active Substance: MAGNESIUM SULFATE
     Dosage: 2.5 G
     Route: 041
     Dates: start: 20240914, end: 20240914
  58. HUMAN RED BLOOD CELL [Concomitant]
     Active Substance: HUMAN RED BLOOD CELL
     Indication: Prophylaxis
     Dosage: 1 UNIT
     Route: 041
     Dates: start: 20240612, end: 20240612
  59. LECITHIN [Concomitant]
     Active Substance: LECITHIN
     Indication: Prophylaxis
     Dosage: 4 GRAIN
     Route: 048
     Dates: start: 20240520, end: 20240527
  60. THYMALFASIN [Concomitant]
     Active Substance: THYMALFASIN
     Indication: Prophylaxis
     Dosage: 1.6 MG
     Route: 058
     Dates: start: 20240624, end: 20240624
  61. HUMAN RED BLOOD CELL [Concomitant]
     Active Substance: HUMAN RED BLOOD CELL
     Indication: Prophylaxis
     Dosage: 2 UNIT
     Route: 041
     Dates: start: 20240625, end: 20240625
  62. LIDOCAINE HYDROCHLORIDE [Concomitant]
     Active Substance: LIDOCAINE HYDROCHLORIDE
     Indication: Prophylaxis
     Dosage: 5 ML
     Route: 058
     Dates: start: 20240711, end: 20240711
  63. ZOLEDRONIC ACID [Concomitant]
     Active Substance: ZOLEDRONIC ACID
     Indication: Prophylaxis
     Dosage: 4 MG
     Route: 041
     Dates: start: 20240821, end: 20240821
  64. RECOMBINANT HUMAN THROMBOPOIETIN [Concomitant]
     Active Substance: RECOMBINANT HUMAN THROMBOPOIETIN
     Indication: Prophylaxis
     Dosage: 15000 U
     Route: 058
     Dates: start: 20240822
  65. ESCULIN AND DIGITALISGLYCOSIDES [Concomitant]
     Dosage: UNK
     Route: 050
     Dates: start: 20240913
  66. ACETAMINOPHEN [Concomitant]
     Active Substance: ACETAMINOPHEN
     Dosage: UNK
     Route: 048
     Dates: start: 20240914, end: 20240915
  67. LEVOFLOXACIN [Concomitant]
     Active Substance: LEVOFLOXACIN
     Dosage: UNK
     Route: 042
     Dates: start: 20240914, end: 20240915
  68. CALCITRIOL [Concomitant]
     Active Substance: CALCITRIOL
     Indication: Prophylaxis
     Dosage: UNK
     Route: 048
     Dates: start: 20240915, end: 20241004
  69. LIVE COMBINED BIFIDOBACTERIUM, LACTOBACILLUS AND ENTEROCOCCUS [Concomitant]
     Dosage: 6 OTHER
     Route: 048
     Dates: start: 20240918, end: 20240923
  70. DEFERASIROX [Concomitant]
     Active Substance: DEFERASIROX
     Dosage: UNK
     Route: 048
     Dates: start: 20240919

REACTIONS (3)
  - White blood cell count decreased [Recovered/Resolved]
  - White blood cell count decreased [Recovered/Resolved]
  - White blood cell count decreased [Not Recovered/Not Resolved]

NARRATIVE: CASE EVENT DATE: 20240824
